FAERS Safety Report 18774250 (Version 2)
Quarter: 2023Q2

REPORT INFORMATION
  Report Type: Report from Study
  Country: US (occurrence: US)
  Receive Date: 20210122
  Receipt Date: 20230505
  Transmission Date: 20230721
  Serious: No
  Sender: FDA-Public Use
  Company Number: US-TAKEDA-2021TUS003076

PATIENT
  Age: 62 Year
  Sex: Male
  Weight: 83.447 kg

DRUGS (4)
  1. IXAZOMIB [Suspect]
     Active Substance: IXAZOMIB
     Indication: Plasma cell myeloma
     Dosage: 4 MILLIGRAM, 1/WEEK
     Route: 048
     Dates: start: 20201222
  2. IXAZOMIB [Suspect]
     Active Substance: IXAZOMIB
     Indication: Neoplasm malignant
     Dosage: 4 MILLIGRAM
     Route: 048
     Dates: start: 202212
  3. ELIQUIS [Concomitant]
     Active Substance: APIXABAN
     Dosage: UNK
     Route: 065
  4. REVLIMID [Concomitant]
     Active Substance: LENALIDOMIDE
     Dosage: UNK
     Route: 065

REACTIONS (4)
  - Paraesthesia [Unknown]
  - Skin burning sensation [Unknown]
  - Peripheral swelling [Unknown]
  - Rash [Unknown]

NARRATIVE: CASE EVENT DATE: 20210114
